FAERS Safety Report 17730326 (Version 2)
Quarter: 2020Q2

REPORT INFORMATION
  Report Type: Spontaneous
  Country: US (occurrence: US)
  Receive Date: 20200430
  Receipt Date: 20200504
  Transmission Date: 20200714
  Serious: No
  Sender: FDA-Public Use
  Company Number: US-PFIZER INC-2020110096

PATIENT
  Age: 72 Year
  Sex: Female

DRUGS (2)
  1. PREMARIN [Suspect]
     Active Substance: ESTROGENS, CONJUGATED
     Dosage: UNK, 2X/WEEK(0.5 CREAM EVERY 2 WEEKS (WHEN I HAVE PAIN))
     Route: 067
  2. PREMARIN [Suspect]
     Active Substance: ESTROGENS, CONJUGATED
     Dosage: 0.5 G, DAILY(APPLY 0.5 GM VAGINAL DAILY)
     Route: 067

REACTIONS (2)
  - Intentional product misuse [Unknown]
  - Off label use [Unknown]
